FAERS Safety Report 4404632-6 (Version None)
Quarter: 2004Q3

REPORT INFORMATION
  Report Type: 
  Country: None (occurrence: None)
  Receive Date: 20040720
  Receipt Date: 20040707
  Transmission Date: 20050211
  Serious: Yes (Other)
  Sender: FDA-Public Use
  Company Number: 176510

PATIENT
  Age: 52 Year
  Sex: Male
  Weight: 123.832 kg

DRUGS (3)
  1. AVONEX [Suspect]
     Indication: MULTIPLE SCLEROSIS
     Dosage: 30 MCG QW IM
     Route: 030
     Dates: start: 20020814, end: 20030101
  2. AVONEX [Suspect]
     Indication: MULTIPLE SCLEROSIS
     Dosage: 30 MCG QS IM
     Route: 030
     Dates: start: 20030101
  3. PAXIL [Concomitant]

REACTIONS (7)
  - BENIGN COLONIC POLYP [None]
  - BLOOD PRESSURE INCREASED [None]
  - BRACHYTHERAPY [None]
  - HYPERTONIC BLADDER [None]
  - MULTIPLE SCLEROSIS [None]
  - PROSTATE CANCER [None]
  - SINUSITIS [None]
